FAERS Safety Report 16726741 (Version 1)
Quarter: 2020Q3

REPORT INFORMATION
  Report Type: Report from Study
  Country: None (occurrence: US)
  Receive Date: 20190821
  Receipt Date: 20190821
  Transmission Date: 20201104
  Serious: Yes (Hospitalization)
  Sender: FDA-Public Use
  Company Number: US-ABBVIE-19P-163-2850223-00

PATIENT
  Age: 38 Year
  Sex: Male
  Weight: 59 kg

DRUGS (55)
  1. CARAFATE [Concomitant]
     Active Substance: SUCRALFATE
     Indication: PROPHYLAXIS
     Route: 048
     Dates: start: 20190429, end: 20190503
  2. SENOKOT [Concomitant]
     Active Substance: SENNOSIDES
     Dosage: NIGHTLY
     Route: 048
     Dates: start: 20190520, end: 20190521
  3. SENOKOT [Concomitant]
     Active Substance: SENNOSIDES
     Dosage: NIGHTLY
     Route: 048
     Dates: start: 20190522, end: 20190524
  4. ATIVAN [Concomitant]
     Active Substance: LORAZEPAM
     Route: 042
     Dates: start: 20190426, end: 20190426
  5. ATIVAN [Concomitant]
     Active Substance: LORAZEPAM
     Route: 042
     Dates: start: 20190501, end: 20190501
  6. ACYCLOVIR. [Concomitant]
     Active Substance: ACYCLOVIR
     Indication: ANTIVIRAL PROPHYLAXIS
     Route: 048
     Dates: start: 20190503
  7. VENETOCLAX. [Suspect]
     Active Substance: VENETOCLAX
     Route: 048
     Dates: start: 20190427, end: 20190511
  8. VENETOCLAX. [Suspect]
     Active Substance: VENETOCLAX
     Route: 048
     Dates: start: 20190524, end: 20190610
  9. TAPOTOCLAX. [Suspect]
     Active Substance: TAPOTOCLAX
     Indication: ACUTE MYELOID LEUKAEMIA
     Dosage: ON DAYS 1,2,8,9,15 +16 OF 28 DAY CYCLE
     Route: 042
     Dates: start: 20190424, end: 20190425
  10. TAPOTOCLAX. [Suspect]
     Active Substance: TAPOTOCLAX
     Dosage: ON DAYS 1,2,8,9,15 +16 OF 28 DAY CYCLE
     Route: 042
     Dates: start: 20190730
  11. SODIUM CHLORIDE (NS) 0.9% ORAL RINSE [Concomitant]
     Indication: PROPHYLAXIS
     Route: 048
     Dates: start: 20190423, end: 20190503
  12. PREPARATION H (PHENYLEPHRINE?MINERAL OIL?PET) 0.25?14?74.9% [Concomitant]
     Indication: RECTAL FISSURE
     Dosage: 1 APPLICATION
     Route: 054
     Dates: start: 20190424, end: 20190428
  13. PEPCID [Concomitant]
     Active Substance: FAMOTIDINE
     Indication: ABDOMINAL PAIN UPPER
  14. CARAFATE [Concomitant]
     Active Substance: SUCRALFATE
     Indication: ABDOMINAL PAIN
     Route: 048
     Dates: start: 20190503
  15. SENOKOT [Concomitant]
     Active Substance: SENNOSIDES
     Dosage: NIGHTLY
     Route: 048
     Dates: start: 20190511, end: 20190511
  16. ACYCLOVIR. [Concomitant]
     Active Substance: ACYCLOVIR
     Route: 048
     Dates: start: 20190520, end: 20190526
  17. FLAGYL [Concomitant]
     Active Substance: METRONIDAZOLE\METRONIDAZOLE HYDROCHLORIDE
     Route: 048
     Dates: start: 20190521, end: 20190526
  18. ALLOPURINOL. [Concomitant]
     Active Substance: ALLOPURINOL
     Route: 048
     Dates: start: 20190423
  19. PREPARATION H (PHENYLEPHRINE?MINERAL OIL?PET) 0.25?14?74.9% [Concomitant]
     Dosage: 1 APPLICATION
     Route: 054
     Dates: start: 20190502, end: 20190503
  20. PREPARATION H (PHENYLEPHRINE?MINERAL OIL?PET) 0.25?14?74.9% [Concomitant]
     Route: 054
     Dates: start: 20190504
  21. COLACE [Concomitant]
     Active Substance: DOCUSATE SODIUM
     Route: 048
     Dates: start: 20190428, end: 20190502
  22. FLAGYL [Concomitant]
     Active Substance: METRONIDAZOLE\METRONIDAZOLE HYDROCHLORIDE
     Route: 048
     Dates: start: 20190520, end: 20190520
  23. MORPHINE [Concomitant]
     Active Substance: MORPHINE
     Indication: BACK PAIN
  24. ACYCLOVIR. [Concomitant]
     Active Substance: ACYCLOVIR
     Route: 048
     Dates: start: 20190423, end: 20190503
  25. MORPHINE [Concomitant]
     Active Substance: MORPHINE
     Indication: PAIN IN EXTREMITY
  26. VENETOCLAX. [Suspect]
     Active Substance: VENETOCLAX
     Indication: ACUTE MYELOID LEUKAEMIA
     Route: 048
     Dates: start: 20190425, end: 20190426
  27. VENETOCLAX. [Suspect]
     Active Substance: VENETOCLAX
     Route: 048
     Dates: start: 20190611, end: 20190620
  28. VENETOCLAX. [Suspect]
     Active Substance: VENETOCLAX
     Route: 048
     Dates: start: 20190810
  29. ALLOPURINOL. [Concomitant]
     Active Substance: ALLOPURINOL
     Indication: PROPHYLAXIS
     Route: 048
     Dates: start: 20190423
  30. PREPARATION H (PHENYLEPHRINE?MINERAL OIL?PET) 0.25?14?74.9% [Concomitant]
     Route: 054
     Dates: start: 20190508, end: 20190512
  31. PREPARATION H (PHENYLEPHRINE?MINERAL OIL?PET) 0.25?14?74.9% [Concomitant]
     Dosage: 1 APPLICATION
     Route: 054
     Dates: start: 20190521, end: 20190521
  32. MIRALAX [Concomitant]
     Active Substance: POLYETHYLENE GLYCOL 3350
     Indication: CONSTIPATION PROPHYLAXIS
     Route: 048
     Dates: start: 20190503
  33. ATIVAN [Concomitant]
     Active Substance: LORAZEPAM
     Indication: ANXIETY
     Route: 048
     Dates: start: 20190508, end: 20190508
  34. ATIVAN [Concomitant]
     Active Substance: LORAZEPAM
     Indication: VOMITING
     Route: 048
     Dates: start: 20190522, end: 20190522
  35. MORPHINE [Concomitant]
     Active Substance: MORPHINE
     Indication: MYALGIA
  36. VENETOCLAX. [Suspect]
     Active Substance: VENETOCLAX
     Route: 048
     Dates: start: 20190512, end: 20190521
  37. TAPOTOCLAX. [Suspect]
     Active Substance: TAPOTOCLAX
     Dosage: ON DAYS 1,2,8,9,15 +16 OF 28 DAY CYCLE
     Route: 042
     Dates: start: 20190501, end: 20190709
  38. PEPCID [Concomitant]
     Active Substance: FAMOTIDINE
     Indication: GASTROINTESTINAL DISORDER PROPHYLAXIS
     Route: 048
     Dates: start: 20190423
  39. SENOKOT [Concomitant]
     Active Substance: SENNOSIDES
     Dosage: NIGHTLY
     Route: 048
     Dates: start: 20190507, end: 20190508
  40. ATIVAN [Concomitant]
     Active Substance: LORAZEPAM
     Route: 048
     Dates: start: 20190424, end: 20190503
  41. COLACE [Concomitant]
     Active Substance: DOCUSATE SODIUM
     Route: 048
     Dates: start: 20190423, end: 20190425
  42. FLAGYL [Concomitant]
     Active Substance: METRONIDAZOLE\METRONIDAZOLE HYDROCHLORIDE
     Indication: PROCTALGIA
     Route: 048
     Dates: start: 20190620
  43. VENETOCLAX. [Suspect]
     Active Substance: VENETOCLAX
     Route: 048
     Dates: start: 20190730, end: 20190809
  44. SODIUM CHLORIDE (NS) 0.9% ORAL RINSE [Concomitant]
     Route: 048
     Dates: start: 20190520, end: 20190526
  45. SENOKOT [Concomitant]
     Active Substance: SENNOSIDES
     Indication: CONSTIPATION PROPHYLAXIS
     Dosage: NIGHTLY
     Route: 048
     Dates: start: 20190503
  46. MIRALAX [Concomitant]
     Active Substance: POLYETHYLENE GLYCOL 3350
     Route: 048
     Dates: start: 20190428, end: 20190429
  47. FLAGYL [Concomitant]
     Active Substance: METRONIDAZOLE\METRONIDAZOLE HYDROCHLORIDE
     Indication: ANTIBIOTIC PROPHYLAXIS
     Route: 042
     Dates: start: 20190510, end: 20190512
  48. VENETOCLAX. [Suspect]
     Active Substance: VENETOCLAX
     Route: 048
     Dates: start: 20190625, end: 20190709
  49. SENOKOT [Concomitant]
     Active Substance: SENNOSIDES
     Dosage: NIGHTLY
     Route: 048
     Dates: start: 20190509, end: 20190510
  50. MIRALAX [Concomitant]
     Active Substance: POLYETHYLENE GLYCOL 3350
     Route: 048
     Dates: start: 20190507, end: 20190511
  51. MIRALAX [Concomitant]
     Active Substance: POLYETHYLENE GLYCOL 3350
     Route: 048
     Dates: start: 20190521, end: 20190524
  52. ATIVAN [Concomitant]
     Active Substance: LORAZEPAM
     Indication: PROPHYLAXIS OF NAUSEA AND VOMITING
     Dosage: BID
     Route: 048
     Dates: start: 20190503
  53. COLACE [Concomitant]
     Active Substance: DOCUSATE SODIUM
     Indication: CONSTIPATION PROPHYLAXIS
     Route: 048
     Dates: start: 20190503
  54. FLAGYL [Concomitant]
     Active Substance: METRONIDAZOLE\METRONIDAZOLE HYDROCHLORIDE
     Indication: RECTAL FISSURE
     Route: 042
     Dates: start: 20190510, end: 20190512
  55. MORPHINE [Concomitant]
     Active Substance: MORPHINE
     Indication: ABDOMINAL PAIN
     Dosage: FREQ: Q4H PRN
     Route: 042
     Dates: start: 20190715

REACTIONS (2)
  - Sepsis [Recovered/Resolved]
  - Febrile neutropenia [Recovered/Resolved]

NARRATIVE: CASE EVENT DATE: 20190710
